FAERS Safety Report 11838180 (Version 1)
Quarter: 2015Q4

REPORT INFORMATION
  Report Type: Spontaneous
  Country: US (occurrence: US)
  Receive Date: 20151215
  Receipt Date: 20151215
  Transmission Date: 20160305
  Serious: No
  Sender: FDA-Public Use
  Company Number: US-GLAXOSMITHKLINE-US2015157569

PATIENT
  Sex: Female

DRUGS (3)
  1. ADVAIR DISKUS [Suspect]
     Active Substance: FLUTICASONE PROPIONATE\SALMETEROL XINAFOATE
     Indication: ASTHMA
     Dosage: 1 PUFF(S), BID
     Route: 055
     Dates: start: 2012, end: 201510
  2. SINGULAIR [Concomitant]
     Active Substance: MONTELUKAST SODIUM
     Indication: PRODUCT USED FOR UNKNOWN INDICATION
     Dosage: UNK
  3. NAPROXEN. [Concomitant]
     Active Substance: NAPROXEN
     Indication: PRODUCT USED FOR UNKNOWN INDICATION

REACTIONS (14)
  - Abdominal distension [Recovering/Resolving]
  - Hypersensitivity [Recovering/Resolving]
  - Vascular injury [Recovering/Resolving]
  - Urticaria [Recovering/Resolving]
  - Fluid retention [Recovering/Resolving]
  - Lip exfoliation [Recovering/Resolving]
  - Lip swelling [Recovered/Resolved]
  - Weight increased [Recovering/Resolving]
  - Skin irritation [Recovering/Resolving]
  - Laryngitis [Recovering/Resolving]
  - Abdominal discomfort [Recovered/Resolved]
  - Rash [Recovering/Resolving]
  - Sleep disorder [Recovering/Resolving]
  - Eye swelling [Recovering/Resolving]
